FAERS Safety Report 11383748 (Version 1)
Quarter: 2015Q3

REPORT INFORMATION
  Report Type: Spontaneous
  Country: IN (occurrence: IN)
  Receive Date: 20150814
  Receipt Date: 20150814
  Transmission Date: 20151125
  Serious: Yes (Other)
  Sender: FDA-Public Use
  Company Number: PHHY2015IN094260

PATIENT
  Age: 51 Year
  Sex: Female

DRUGS (3)
  1. 5-FLUOROURACIL [Suspect]
     Active Substance: FLUOROURACIL
     Indication: METASTASES TO LIVER
     Route: 065
  2. OXALIPLATIN. [Suspect]
     Active Substance: OXALIPLATIN
     Indication: METASTASES TO LIVER
     Route: 065
  3. FOLINIC ACID [Suspect]
     Active Substance: LEUCOVORIN
     Indication: METASTASES TO LIVER
     Route: 065

REACTIONS (6)
  - Steatohepatitis [Recovering/Resolving]
  - Ascites [Recovered/Resolved]
  - Procedural haemorrhage [Recovered/Resolved]
  - Jaundice [Recovered/Resolved]
  - Venoocclusive liver disease [Recovering/Resolving]
  - Acute hepatic failure [Recovered/Resolved]
